FAERS Safety Report 14000206 (Version 1)
Quarter: 2017Q3

REPORT INFORMATION
  Report Type: Spontaneous
  Country: DE (occurrence: DE)
  Receive Date: 20170922
  Receipt Date: 20170922
  Transmission Date: 20171128
  Serious: Yes (Other)
  Sender: FDA-Public Use
  Company Number: PHHY2017DE136881

PATIENT
  Age: 51 Year
  Sex: Female

DRUGS (1)
  1. GILENYA [Suspect]
     Active Substance: FINGOLIMOD HYDROCHLORIDE
     Indication: MULTIPLE SCLEROSIS
     Dosage: UNK
     Route: 065
     Dates: start: 201011

REACTIONS (5)
  - Abdominal pain upper [Unknown]
  - Metastases to peritoneum [Unknown]
  - Hypersplenism [Unknown]
  - Alanine aminotransferase increased [Unknown]
  - Metastases to liver [Unknown]
